FAERS Safety Report 8860216 (Version 1)
Quarter: 2012Q4

REPORT INFORMATION
  Report Type: 
  Country: NL (occurrence: NL)
  Receive Date: 20121025
  Receipt Date: 20121025
  Transmission Date: 20130627
  Serious: Yes (Hospitalization)
  Sender: FDA-Public Use
  Company Number: PHHY2012NL094806

PATIENT
  Age: 70 Year
  Sex: Male

DRUGS (2)
  1. ZOMETA [Suspect]
     Indication: PROSTATE CANCER METASTATIC
     Dosage: 4mg/100ml once per 28 days
  2. ZOMETA [Suspect]
     Dosage: 4mg/100ml once per 28 days
     Dates: start: 20120620

REACTIONS (3)
  - Gastrointestinal disorder [Not Recovered/Not Resolved]
  - Intestinal polyp [Unknown]
  - Intestinal perforation [Unknown]
